FAERS Safety Report 9193833 (Version 1)
Quarter: 2013Q1

REPORT INFORMATION
  Report Type: Spontaneous
  Country: CA (occurrence: CA)
  Receive Date: 20130327
  Receipt Date: 20130327
  Transmission Date: 20140127
  Serious: Yes (Other)
  Sender: FDA-Public Use
  Company Number: CA-AMGEN-CANSP2013020190

PATIENT
  Age: 78 Year
  Sex: Male
  Weight: 60 kg

DRUGS (1)
  1. PROLIA [Suspect]
     Indication: OSTEOPOROSIS
     Dosage: UNK
     Dates: start: 20120420

REACTIONS (5)
  - Trismus [Unknown]
  - Musculoskeletal stiffness [Unknown]
  - Chapped lips [Unknown]
  - Dry skin [Unknown]
  - Pruritus [Unknown]
